FAERS Safety Report 9674962 (Version 1)
Quarter: 2013Q4

REPORT INFORMATION
  Report Type: Spontaneous
  Country: CA (occurrence: CA)
  Receive Date: 20131107
  Receipt Date: 20131107
  Transmission Date: 20140711
  Serious: Yes (Other)
  Sender: FDA-Public Use
  Company Number: CA-AMGEN-CANSP2013077846

PATIENT
  Age: 63 Year
  Sex: Female

DRUGS (11)
  1. PROLIA [Suspect]
     Indication: PRODUCT USED FOR UNKNOWN INDICATION
     Dosage: UNK
     Route: 065
     Dates: start: 201304
  2. FAMVIR                             /01226201/ [Concomitant]
     Dosage: 500 MG, 3 TABS IMMEDIATELY, THEN 3 TABS 12 HOURS LATER (AS NECESSARY)
  3. TYLENOL                            /00020001/ [Concomitant]
     Dosage: 500 MG, 2 TABS, TID
  4. TIAZAC                             /00489702/ [Concomitant]
     Dosage: 240 MG, QD
  5. SYMBICORT [Concomitant]
     Dosage: 200 MUG, BID, 2 PUFFS
  6. ELAVIL                             /00002202/ [Concomitant]
     Dosage: 50 MG, QD, BED TIME
  7. CALCIUM WITH VITAMIN D             /00944201/ [Concomitant]
     Dosage: 500 MG/ 1000 IU, QD
  8. LYRICA [Concomitant]
     Dosage: 75 MG, BID, MORNING AND NIGHT
  9. BRICANYL [Concomitant]
     Dosage: 1 PUFF, QID
  10. NASONEX [Concomitant]
     Dosage: 2 SPRAYS, QD, AS NECESSARY
  11. NEXIUM                             /01479302/ [Concomitant]
     Dosage: 40 MG, QD, EVERY MORNING

REACTIONS (2)
  - Tooth fracture [Unknown]
  - Device failure [Unknown]
